FAERS Safety Report 4499028-5 (Version None)
Quarter: 2004Q4

REPORT INFORMATION
  Report Type: 
  Country: None (occurrence: None)
  Receive Date: 20041110
  Receipt Date: 20041110
  Transmission Date: 20050328
  Serious: Yes (Hospitalization)
  Sender: FDA-Public Use
  Company Number: None

PATIENT
  Age: 48 Year
  Sex: Male
  Weight: 80.9 kg

DRUGS (1)
  1. ETODOLAC [Suspect]
     Indication: PAIN
     Dosage: 300 MG TID PO PRN
     Route: 048
     Dates: start: 20040301, end: 20040731

REACTIONS (4)
  - GASTRITIS [None]
  - HAEMATEMESIS [None]
  - MEDICATION ERROR [None]
  - UPPER GASTROINTESTINAL HAEMORRHAGE [None]
